FAERS Safety Report 17881500 (Version 1)
Quarter: 2020Q2

REPORT INFORMATION
  Report Type: Spontaneous
  Country: US (occurrence: US)
  Receive Date: 20200610
  Receipt Date: 20200610
  Transmission Date: 20200714
  Serious: No
  Sender: FDA-Public Use
  Company Number: US-COLLEGIUM PHARMACEUTICAL, INC.-2019CGM00212

PATIENT
  Age: 59 Year
  Sex: Male
  Weight: 97.51 kg

DRUGS (6)
  1. CELEBREX [Concomitant]
     Active Substance: CELECOXIB
  2. GABAPENTIN. [Concomitant]
     Active Substance: GABAPENTIN
  3. XTAMPZA ER [Suspect]
     Active Substance: OXYCODONE
     Indication: POST LAMINECTOMY SYNDROME
     Dosage: 13.5 MG
     Dates: start: 20190625, end: 20190730
  4. CLONAZEPAM. [Concomitant]
     Active Substance: CLONAZEPAM
  5. XTAMPZA ER [Suspect]
     Active Substance: OXYCODONE
     Indication: POST LAMINECTOMY SYNDROME
     Dosage: 18 MG, 2X/DAY
     Dates: start: 20190731, end: 2019
  6. BACLOFEN. [Concomitant]
     Active Substance: BACLOFEN
     Dosage: UNK, AS NEEDED

REACTIONS (8)
  - Anxiety [Recovered/Resolved]
  - Palpitations [Recovered/Resolved]
  - Product substitution issue [Recovered/Resolved]
  - Depression [Recovered/Resolved]
  - Hyperhidrosis [Recovered/Resolved]
  - Anger [Recovered/Resolved]
  - Insomnia [Recovered/Resolved]
  - Dysuria [Recovered/Resolved]

NARRATIVE: CASE EVENT DATE: 2019
